FAERS Safety Report 9935469 (Version 2)
Quarter: 2014Q2

REPORT INFORMATION
  Report Type: Spontaneous
  Country: US (occurrence: US)
  Receive Date: 20140228
  Receipt Date: 20140408
  Transmission Date: 20141212
  Serious: No
  Sender: FDA-Public Use
  Company Number: US-PFIZER INC-2014054731

PATIENT
  Sex: Female

DRUGS (2)
  1. ZOLOFT [Suspect]
     Indication: DEPRESSION
     Dosage: UNK
     Dates: start: 201402, end: 201403
  2. PAXIL [Concomitant]
     Dosage: UNK
     Dates: end: 201402

REACTIONS (2)
  - Sleep disorder [Unknown]
  - Drug ineffective [Unknown]
